FAERS Safety Report 24668793 (Version 1)
Quarter: 2024Q4

REPORT INFORMATION
  Report Type: Spontaneous
  Country: GB (occurrence: GB)
  Receive Date: 20241127
  Receipt Date: 20241127
  Transmission Date: 20250115
  Serious: Yes (Other)
  Sender: RANBAXY
  Company Number: GB-MHRA-TPP39731864C9151471YC1731359684128

PATIENT
  Age: 67 Year
  Sex: Male
  Weight: 88 kg

DRUGS (18)
  1. PREGABALIN [Suspect]
     Active Substance: PREGABALIN
     Indication: Product used for unknown indication
     Dosage: 75MG CAPSULES TAKE ONE CAPSULE (75MG) DAILY FOR 2 WEEKS AND T...
     Route: 065
     Dates: start: 20241024
  2. FLUCLOXACILLIN [Concomitant]
     Active Substance: FLUCLOXACILLIN
     Indication: Ill-defined disorder
     Dosage: ONE TABLET FOUR TIMES A DAY FOR 7 DAYS
     Route: 065
     Dates: start: 20241029, end: 20241105
  3. FUSIDIC ACID [Concomitant]
     Active Substance: FUSIDIC ACID
     Indication: Ill-defined disorder
     Dosage: APPLY TWICE DAILY FOR 7 DAYS RASH ON CHIN
     Route: 065
  4. PREDNISOLONE [Concomitant]
     Active Substance: PREDNISOLONE
     Indication: Ill-defined disorder
     Dosage: TAKE 6 TABLETS (30MG) EVERY DAY FOR 3 DAYS FOR ...
     Route: 065
  5. TRULICITY [Concomitant]
     Active Substance: DULAGLUTIDE
     Indication: Ill-defined disorder
     Dosage: USE AS DIRECTED
     Route: 065
     Dates: start: 20240119
  6. GLUCORX FINEPOINT [Concomitant]
     Indication: Ill-defined disorder
     Dosage: USE AS DIRECTED
     Route: 065
     Dates: start: 20240119
  7. ASPIRIN [Concomitant]
     Active Substance: ASPIRIN
     Indication: Ill-defined disorder
     Dosage: TAKE ONE DAILY FOR SUSPECTED PERIPHERAL ARTERIA...
     Route: 065
     Dates: start: 20240119
  8. ATENOLOL [Concomitant]
     Active Substance: ATENOLOL
     Indication: Ill-defined disorder
     Dosage: 1 EVERY DAY
     Route: 065
     Dates: start: 20240119
  9. DOXAZOSIN [Concomitant]
     Active Substance: DOXAZOSIN\DOXAZOSIN MESYLATE
     Indication: Ill-defined disorder
     Dosage: ONE TABLET DAILY FOR BLOOD PRESSURE CONTROL
     Route: 065
     Dates: start: 20240119
  10. INDAPAMIDE [Concomitant]
     Active Substance: INDAPAMIDE
     Indication: Ill-defined disorder
     Dosage: 1 EVERY DAY FOR BLOOD PRESSURE
     Route: 065
     Dates: start: 20240119
  11. LANTUS [Concomitant]
     Active Substance: INSULIN GLARGINE
     Indication: Diabetes mellitus
     Dosage: 54 UNITS AT NIGHT FOR DIABETES
     Route: 065
     Dates: start: 20240119
  12. POLYETHYLENE GLYCOL 3350\POTASSIUM CHLORIDE\SODIUM BICARBONATE\SODIUM [Concomitant]
     Active Substance: POLYETHYLENE GLYCOL 3350\POTASSIUM CHLORIDE\SODIUM BICARBONATE\SODIUM CHLORIDE
     Indication: Ill-defined disorder
     Dosage: 2 SACHETS DAILY
     Route: 065
     Dates: start: 20240119
  13. LOSARTAN [Concomitant]
     Active Substance: LOSARTAN
     Indication: Ill-defined disorder
     Dosage: 1 EVERY DAY FOR BLOOD PRESSURE
     Route: 065
     Dates: start: 20240119
  14. METFORMIN [Concomitant]
     Active Substance: METFORMIN HYDROCHLORIDE
     Indication: Ill-defined disorder
     Dosage: 2 TWICE A DAY FOR DIABETES
     Route: 065
     Dates: start: 20240119
  15. ROSUVASTATIN [Concomitant]
     Active Substance: ROSUVASTATIN
     Indication: Ill-defined disorder
     Dosage: TAKE ONE DAILY AS PER LIPID CLINC
     Route: 065
     Dates: start: 20240119
  16. TEE2 [Concomitant]
     Indication: Ill-defined disorder
     Dosage: USE AS DIRECTED
     Route: 065
     Dates: start: 20240119
  17. SEMAGLUTIDE [Concomitant]
     Active Substance: SEMAGLUTIDE
     Indication: Ill-defined disorder
     Dosage: TAKE ONE DAILY AS DIRECTED BY SPECIALIST
     Route: 065
     Dates: start: 20240521
  18. MINERAL OIL\PETROLATUM\WAX, EMULSIFYING [Concomitant]
     Active Substance: MINERAL OIL\PETROLATUM\WAX, EMULSIFYING
     Indication: Ill-defined disorder
     Dosage: APPLY REGULARLY AS MOISTURISER AND AS SOAP SUBS...
     Route: 065

REACTIONS (2)
  - Gastrointestinal disorder [Recovered/Resolved]
  - Rash [Unknown]
